FAERS Safety Report 26168579 (Version 1)
Quarter: 2025Q4

REPORT INFORMATION
  Report Type: Spontaneous
  Country: US (occurrence: US)
  Receive Date: 20251217
  Receipt Date: 20251217
  Transmission Date: 20260118
  Serious: Yes (Death, Hospitalization, Other)
  Sender: RECORDATI
  Company Number: US-ORPHANEU-2025008969

PATIENT
  Age: 50 Year
  Sex: Male

DRUGS (3)
  1. DACTINOMYCIN [Suspect]
     Active Substance: DACTINOMYCIN
     Indication: Ewing^s sarcoma metastatic
     Dosage: UNK
  2. VINCRISTINE [Suspect]
     Active Substance: VINCRISTINE
     Indication: Ewing^s sarcoma metastatic
     Dosage: UNK
  3. CYCLOPHOSPHAMIDE [Suspect]
     Active Substance: CYCLOPHOSPHAMIDE
     Indication: Ewing^s sarcoma metastatic
     Dosage: UNK

REACTIONS (5)
  - Respiratory failure [Fatal]
  - Malignant pleural effusion [Fatal]
  - Lung infiltration [Fatal]
  - Pneumothorax spontaneous [Unknown]
  - Epistaxis [Unknown]
